FAERS Safety Report 9569760 (Version 1)
Quarter: 2013Q3

REPORT INFORMATION
  Report Type: Spontaneous
  Country: US (occurrence: US)
  Receive Date: 20130930
  Receipt Date: 20130930
  Transmission Date: 20140515
  Serious: No
  Sender: FDA-Public Use
  Company Number: US-AMGEN-USASP2013065500

PATIENT
  Age: 50 Year
  Sex: Male
  Weight: 82.54 kg

DRUGS (14)
  1. ENBREL [Suspect]
     Indication: RHEUMATOID ARTHRITIS
     Dosage: 50 MG, QWK
     Route: 058
  2. PREDNISONE [Concomitant]
     Dosage: 1 MG, UNK
  3. ETODOLAC [Concomitant]
     Dosage: 200 MG, UNK
  4. PAROXETINE [Concomitant]
     Dosage: 10 MG, UNK
  5. LORAZEPAM [Concomitant]
     Dosage: 0.5 MG, UNK
  6. IRON [Concomitant]
     Dosage: UNK
  7. MAGNESIUM [Concomitant]
     Dosage: 300 MG, UNK
  8. ZICAM                              /00285201/ [Concomitant]
     Dosage: UNK
  9. FLONASE                            /00908302/ [Concomitant]
     Dosage: 0.05 %, UNK
  10. FOLIC ACID [Concomitant]
     Dosage: UNK
  11. CIMETIDINE [Concomitant]
     Dosage: 200 MG, UNK
  12. PRAVASTATIN [Concomitant]
     Dosage: 10 MG, UNK
  13. VITAMIN D                          /00107901/ [Concomitant]
     Dosage: 1000 UNIT, UNK
  14. FISH OIL [Concomitant]
     Dosage: UNK

REACTIONS (1)
  - Drug ineffective [Unknown]
